FAERS Safety Report 6551300-0 (Version None)
Quarter: 2010Q1

REPORT INFORMATION
  Report Type: 
  Country: None (occurrence: None)
  Receive Date: 20100120
  Receipt Date: 20100107
  Transmission Date: 20100710
  Serious: Yes (Life-Threatening)
  Sender: FDA-Public Use
  Company Number: 1000011293

PATIENT
  Age: 21 Year
  Sex: Female

DRUGS (2)
  1. CITALOPRAM HYDROBROMIDE [Suspect]
     Indication: DEPRESSION
     Dosage: 20 MG (20 MG, 1 IN 1 D), ORAL
     Route: 048
     Dates: start: 20091201, end: 20100102
  2. CITALOPRAM HYDROBROMIDE [Suspect]
     Indication: DEPRESSION
     Dosage: 10 MG (10 MG, 1 IN 1 D), ORAL
     Route: 048
     Dates: start: 20091201, end: 20091201

REACTIONS (5)
  - FRACTURE [None]
  - IMPULSE-CONTROL DISORDER [None]
  - PELVIC FRACTURE [None]
  - SELF INJURIOUS BEHAVIOUR [None]
  - THORACIC VERTEBRAL FRACTURE [None]
